FAERS Safety Report 11722657 (Version 1)
Quarter: 2015Q4

REPORT INFORMATION
  Report Type: Spontaneous
  Country: US (occurrence: None)
  Receive Date: 20151110
  Receipt Date: 20151110
  Transmission Date: 20160304
  Serious: Yes (Life-Threatening)
  Sender: FDA-Public Use
  Company Number: None

PATIENT
  Age: 13 Year
  Sex: Female
  Weight: 80.74 kg

DRUGS (8)
  1. TOPIRAMATE. [Concomitant]
     Active Substance: TOPIRAMATE
  2. ZANTAC [Concomitant]
     Active Substance: RANITIDINE HYDROCHLORIDE
  3. ENOXAPARIN [Concomitant]
     Active Substance: ENOXAPARIN
  4. GABAPENTIN. [Concomitant]
     Active Substance: GABAPENTIN
  5. LOVENOX [Suspect]
     Active Substance: ENOXAPARIN SODIUM
     Indication: TRANSVERSE SINUS THROMBOSIS
     Route: 058
     Dates: start: 20151002, end: 20151109
  6. MIRALAX [Concomitant]
     Active Substance: POLYETHYLENE GLYCOL 3350
  7. ACCTAZOLAMIDE [Concomitant]
  8. FLONASE [Concomitant]
     Active Substance: FLUTICASONE PROPIONATE

REACTIONS (4)
  - Product substitution issue [None]
  - Product packaging issue [None]
  - Product packaging quantity issue [None]
  - Incorrect dose administered [None]

NARRATIVE: CASE EVENT DATE: 20151029
